FAERS Safety Report 6043597-0 (Version None)
Quarter: 2009Q1

REPORT INFORMATION
  Report Type: 
  Country: None (occurrence: None)
  Receive Date: 20090120
  Receipt Date: 20090112
  Transmission Date: 20090719
  Serious: Yes (Other)
  Sender: FDA-Public Use
  Company Number: US-ASTRAZENECA-2005UW04576

PATIENT
  Age: 74 Year
  Sex: Female

DRUGS (2)
  1. TOPROL-XL [Suspect]
     Dosage: 25MG
     Route: 048
     Dates: start: 19960101
  2. GLUCOTROL [Concomitant]

REACTIONS (6)
  - ARTHRALGIA [None]
  - CARDIAC OPERATION [None]
  - LIMB DISCOMFORT [None]
  - MUSCULOSKELETAL PAIN [None]
  - PAIN IN EXTREMITY [None]
  - PERIPHERAL VASCULAR DISORDER [None]
